FAERS Safety Report 5033455-2 (Version None)
Quarter: 2006Q2

REPORT INFORMATION
  Report Type: 
  Country: None (occurrence: None)
  Receive Date: 20060621
  Receipt Date: 20060608
  Transmission Date: 20061013
  Serious: Yes (Death)
  Sender: FDA-Public Use
  Company Number: USA-2006-0024399

PATIENT
  Sex: Female

DRUGS (4)
  1. OXYCONTIN [Suspect]
     Dosage: UNK
     Route: 065
  2. ANALGESICS [Suspect]
     Dosage: UNK
     Route: 065
  3. HYPNOTICS AND SEDATIVES [Suspect]
     Dosage: UNK
     Route: 065
  4. MARIJUANA (CANNABIS) [Suspect]
     Dosage: UNK
     Route: 065

REACTIONS (4)
  - BACK INJURY [None]
  - NECK INJURY [None]
  - POLYSUBSTANCE ABUSE [None]
  - VICTIM OF HOMICIDE [None]
